FAERS Safety Report 6969517-X (Version None)
Quarter: 2010Q3

REPORT INFORMATION
  Report Type: 
  Country: None (occurrence: None)
  Receive Date: 20100907
  Receipt Date: 20100907
  Transmission Date: 20110219
  Serious: No
  Sender: FDA-Public Use
  Company Number: None

PATIENT
  Age: 27 Year
  Sex: Female
  Weight: 54.4316 kg

DRUGS (1)
  1. ABILIFY [Suspect]
     Indication: BIPOLAR DISORDER
     Dosage: 2 MG DAILY PO
     Route: 048
     Dates: start: 20100901, end: 20100902

REACTIONS (7)
  - DYSKINESIA [None]
  - FEELING ABNORMAL [None]
  - HEADACHE [None]
  - INFLUENZA LIKE ILLNESS [None]
  - INSOMNIA [None]
  - MALAISE [None]
  - NAUSEA [None]
